FAERS Safety Report 9007121 (Version 2)
Quarter: 2013Q2

REPORT INFORMATION
  Report Type: Spontaneous
  Country: US (occurrence: US)
  Receive Date: 20130110
  Receipt Date: 20130409
  Transmission Date: 20140414
  Serious: No
  Sender: FDA-Public Use
  Company Number: US-009507513-1301USA003043

PATIENT
  Age: 22 Year
  Sex: Female
  Weight: 182.5 kg

DRUGS (2)
  1. IMPLANON [Suspect]
     Indication: CONTRACEPTION
     Dosage: 1 DF, UNK
     Route: 059
     Dates: start: 20120523, end: 20130104
  2. IMPLANON [Suspect]
     Dosage: UNK

REACTIONS (3)
  - Implant site pain [Recovered/Resolved]
  - Device breakage [Unknown]
  - Product quality issue [Unknown]
